FAERS Safety Report 9339543 (Version 1)
Quarter: 2013Q2

REPORT INFORMATION
  Report Type: Spontaneous
  Country: GB (occurrence: GB)
  Receive Date: 20130610
  Receipt Date: 20130610
  Transmission Date: 20140414
  Serious: Yes (Hospitalization, Other)
  Sender: FDA-Public Use
  Company Number: GB-UCBSA-087515

PATIENT
  Sex: Male

DRUGS (15)
  1. LEVETIRACETAM [Suspect]
     Indication: GRAND MAL CONVULSION
     Dosage: UNKNOWN DOSE
  2. LEVETIRACETAM [Suspect]
     Indication: GRAND MAL CONVULSION
     Dosage: DAILY DOSE : 1000 MG
  3. FLUOXETINE [Concomitant]
  4. PAROXETINE [Concomitant]
  5. MIRTAZAPINE [Concomitant]
  6. SULPIRIDE [Concomitant]
  7. REBOXETINE [Concomitant]
  8. CITALOPRAM [Concomitant]
     Dosage: DAILY DOSE : 20 MG
  9. QUETIAPINE [Concomitant]
     Indication: ANXIETY
     Dosage: 25 MG DAILY
  10. BUSPIRONE [Concomitant]
     Indication: ANXIETY DISORDER
  11. VENLAFAXINE XL [Concomitant]
     Indication: DEPRESSION
     Dosage: DAILY DOSE: 150 MG
  12. VENLAFAXINE [Concomitant]
     Indication: ANXIETY
     Dosage: DAILY DOSE: 225 MG
  13. OLANZAPINE [Concomitant]
     Indication: DEPRESSION
     Dosage: AT NIGHT
  14. OLANZAPINE [Concomitant]
     Indication: DEPRESSION
  15. OLANZAPINE [Concomitant]
     Indication: DEPRESSION
     Dosage: 2.5 MG EVERY MORNING AND 5 MG EVERY NIGHT

REACTIONS (10)
  - Hallucination, auditory [Recovered/Resolved]
  - Intentional self-injury [Recovered/Resolved]
  - Petit mal epilepsy [Recovered/Resolved]
  - Complex partial seizures [Recovered/Resolved]
  - Anxiety [Recovered/Resolved]
  - Aggression [Recovered/Resolved]
  - Feeling abnormal [Unknown]
  - Anger [Recovered/Resolved]
  - Depression [Recovered/Resolved]
  - Psychotic disorder [Recovered/Resolved]
